FAERS Safety Report 25989954 (Version 1)
Quarter: 2025Q4

REPORT INFORMATION
  Report Type: Spontaneous
  Country: US (occurrence: None)
  Receive Date: 20251101
  Receipt Date: 20251101
  Transmission Date: 20260117
  Serious: Yes (Disabling)
  Sender: FDA-CTU
  Company Number: None

PATIENT
  Age: 28 Year
  Sex: Female
  Weight: 63 kg

DRUGS (5)
  1. TRETINOIN [Suspect]
     Active Substance: TRETINOIN
     Indication: Acne
     Dosage: FREQUENCY : AT BEDTIME;?
     Route: 061
     Dates: start: 20210101, end: 20210228
  2. XDEMVY [Concomitant]
     Active Substance: LOTILANER
  3. OMEGA 3 [Concomitant]
     Active Substance: CAPSAICIN
  4. ZINC PICOLINAE [Concomitant]
  5. VITAMIN C [Concomitant]
     Active Substance: ASCORBIC ACID

REACTIONS (4)
  - Impaired quality of life [None]
  - Meibomian gland dysfunction [None]
  - Impaired work ability [None]
  - Mental disorder [None]

NARRATIVE: CASE EVENT DATE: 20210310
